FAERS Safety Report 15017698 (Version 1)
Quarter: 2018Q2

REPORT INFORMATION
  Report Type: Spontaneous
  Country: NL (occurrence: NL)
  Receive Date: 20180615
  Receipt Date: 20180615
  Transmission Date: 20180711
  Serious: Yes (Hospitalization, Other)
  Sender: FDA-Public Use
  Company Number: NL-ABBVIE-18K-114-2383818-00

PATIENT
  Sex: Female

DRUGS (11)
  1. HUMIRA [Suspect]
     Active Substance: ADALIMUMAB
     Route: 058
  2. PREDNISOLONE. [Concomitant]
     Active Substance: PREDNISOLONE
     Indication: CROHN^S DISEASE
     Route: 065
     Dates: start: 2017
  3. AZATHIOPRINE. [Suspect]
     Active Substance: AZATHIOPRINE
     Route: 065
     Dates: start: 2017
  4. VEDOLIZUMAB [Suspect]
     Active Substance: VEDOLIZUMAB
     Indication: CROHN^S DISEASE
     Route: 065
     Dates: start: 2017, end: 20180207
  5. HUMIRA [Suspect]
     Active Substance: ADALIMUMAB
     Indication: CROHN^S DISEASE
     Route: 058
     Dates: start: 2012
  6. AZATHIOPRINE. [Suspect]
     Active Substance: AZATHIOPRINE
     Indication: PRODUCT USED FOR UNKNOWN INDICATION
     Route: 065
     Dates: start: 2007
  7. MTX [Concomitant]
     Active Substance: METHOTREXATE SODIUM
     Indication: CROHN^S DISEASE
     Route: 058
     Dates: start: 2018
  8. BUDESONIDE. [Suspect]
     Active Substance: BUDESONIDE
     Indication: PRODUCT USED FOR UNKNOWN INDICATION
     Route: 065
  9. ACYCLOVIR. [Suspect]
     Active Substance: ACYCLOVIR
     Indication: HEPATITIS
     Route: 065
     Dates: end: 2017
  10. BECLOMETHASONE [Concomitant]
     Active Substance: BECLOMETHASONE
     Indication: CROHN^S DISEASE
     Route: 065
  11. ACYCLOVIR. [Suspect]
     Active Substance: ACYCLOVIR
     Route: 065
     Dates: start: 2017

REACTIONS (15)
  - Drug effect incomplete [Unknown]
  - Colitis [Not Recovered/Not Resolved]
  - Renal failure [Unknown]
  - Crohn^s disease [Recovered/Resolved]
  - Gastrointestinal oedema [Unknown]
  - Large intestinal ulcer [Unknown]
  - Cardiac failure [Unknown]
  - Hepatitis [Unknown]
  - Viral myocarditis [Unknown]
  - Anal ulcer [Unknown]
  - Gastrointestinal mucosa hyperaemia [Unknown]
  - Crohn^s disease [Unknown]
  - Herpes simplex [Unknown]
  - Intestinal scarring [Not Recovered/Not Resolved]
  - Drug ineffective [Unknown]

NARRATIVE: CASE EVENT DATE: 2012
